FAERS Safety Report 4300064-X (Version None)
Quarter: 2004Q1

REPORT INFORMATION
  Report Type: 
  Country: None (occurrence: None)
  Receive Date: 20040220
  Receipt Date: 20040129
  Transmission Date: 20041129
  Serious: Yes (Hospitalization)
  Sender: FDA-Public Use
  Company Number: ZA-BRISTOL-MYERS SQUIBB COMPANY-12490371

PATIENT
  Age: 57 Year
  Sex: Female

DRUGS (11)
  1. ZERIT XR [Suspect]
     Indication: HIV INFECTION
     Route: 048
     Dates: start: 20001109, end: 20040104
  2. STOCRIN [Suspect]
     Indication: HIV INFECTION
     Route: 048
     Dates: start: 20001109, end: 20040104
  3. EPIVIR [Suspect]
     Indication: HIV INFECTION
     Route: 048
     Dates: start: 20001109, end: 20040104
  4. ASPIRIN [Concomitant]
  5. ATENOLOL [Concomitant]
  6. ISORDIL [Concomitant]
  7. BECLOMETHASONE DIPROPIONATE [Concomitant]
  8. ENALAPRIL [Concomitant]
  9. AMITRIPTYLINE [Concomitant]
  10. LORAZEPAM [Concomitant]
  11. IBUPROFEN [Concomitant]

REACTIONS (1)
  - BLOOD GLUCOSE ABNORMAL [None]
